FAERS Safety Report 5143173-8 (Version None)
Quarter: 2006Q4

REPORT INFORMATION
  Report Type: 
  Country: None (occurrence: None)
  Receive Date: 20061103
  Receipt Date: 20061011
  Transmission Date: 20070319
  Serious: Yes (Death, Hospitalization)
  Sender: FDA-Public Use
  Company Number: TW-AVENTIS-200620708GDDC

PATIENT
  Age: 61 Year
  Sex: Male
  Weight: 70 kg

DRUGS (19)
  1. TAXOTERE [Suspect]
     Indication: NASOPHARYNGEAL CANCER
     Route: 042
     Dates: start: 20060829, end: 20060926
  2. TAXOTERE [Suspect]
     Indication: NEOPLASM RECURRENCE
     Route: 042
     Dates: start: 20060829, end: 20060926
  3. BETAMETHASONE [Suspect]
     Indication: PROPHYLAXIS
     Route: 042
     Dates: start: 20060829, end: 20060926
  4. RADIOTHERAPY [Suspect]
     Indication: NASOPHARYNGEAL CANCER
     Dosage: DOSE: UNK
     Dates: start: 20060829, end: 20061003
  5. RADIOTHERAPY [Suspect]
     Indication: NEOPLASM RECURRENCE
     Dosage: DOSE: UNK
     Dates: start: 20060829, end: 20061003
  6. DEPAIN PLUS [Concomitant]
     Indication: PAIN
     Route: 048
     Dates: start: 20060815
  7. TRANSAMIN [Concomitant]
     Indication: EPISTAXIS
     Route: 048
     Dates: start: 20060822
  8. CEPHADOL [Concomitant]
     Indication: DIZZINESS
     Route: 048
     Dates: start: 20060822
  9. NAPROXEN [Concomitant]
     Indication: PAIN
     Route: 048
     Dates: start: 20060822
  10. COUGH AND COLD PREPARATIONS [Concomitant]
     Dates: start: 20060919
  11. MUCOSOLVAN [Concomitant]
     Dates: start: 20060919
  12. CETIRIZINE HCL [Concomitant]
     Dates: start: 20060919
  13. MGO [Concomitant]
     Dates: start: 20060919
  14. XANAX [Concomitant]
  15. TAITA SOLU [Concomitant]
     Dates: start: 20060926, end: 20060929
  16. DURAGESIC                          /00174601/ [Concomitant]
     Dates: start: 20060918
  17. VOLTAREN [Concomitant]
     Dates: start: 20060904
  18. NACID                              /00706001/ [Concomitant]
     Dates: start: 20060904
  19. MORPHINE SOLUTION [Concomitant]
     Dosage: DOSE: 0.1%
     Dates: start: 20061002

REACTIONS (5)
  - DIPLOPIA [None]
  - DIZZINESS [None]
  - EPISTAXIS [None]
  - LOSS OF CONSCIOUSNESS [None]
  - VISION BLURRED [None]
